FAERS Safety Report 5296484-X (Version None)
Quarter: 2007Q2

REPORT INFORMATION
  Report Type: 
  Country: None (occurrence: None)
  Receive Date: 20070413
  Receipt Date: 20070403
  Transmission Date: 20071010
  Serious: Yes (Death)
  Sender: FDA-Public Use
  Company Number: BE-PFIZER INC-2006037064

PATIENT
  Sex: Female
  Weight: 65 kg

DRUGS (37)
  1. ZYVOX [Suspect]
     Indication: PNEUMONIA
     Route: 042
     Dates: start: 20060313, end: 20060314
  2. CALCIUM CHLORIDE [Concomitant]
     Route: 065
     Dates: start: 20060315, end: 20060315
  3. CLEXANE [Concomitant]
     Route: 058
     Dates: start: 20060310, end: 20060313
  4. GLUCOSE [Concomitant]
     Route: 042
     Dates: start: 20060315, end: 20060315
  5. MERONEM [Concomitant]
     Route: 042
     Dates: start: 20060314, end: 20060315
  6. SOLU-CORTEF [Concomitant]
     Route: 042
     Dates: start: 20060314, end: 20060315
  7. VANCOMYCIN HCL [Concomitant]
     Route: 042
     Dates: start: 20060312, end: 20060313
  8. VANCOMYCIN HCL [Concomitant]
     Route: 042
     Dates: start: 20060314, end: 20060314
  9. ZANTAC [Concomitant]
     Route: 042
     Dates: start: 20060303, end: 20060314
  10. ALL OTHER THERAPEUTIC PRODUCTS [Concomitant]
     Route: 042
     Dates: start: 20060306, end: 20060315
  11. ACTRAPID [Concomitant]
     Route: 042
     Dates: start: 20060303, end: 20060315
  12. DOBUTAMINE [Concomitant]
     Route: 042
     Dates: start: 20060304, end: 20060305
  13. DOBUTAMINE [Concomitant]
     Route: 042
     Dates: start: 20060314, end: 20060315
  14. MIDAZOLAM HCL [Concomitant]
     Route: 042
     Dates: start: 20060303, end: 20060305
  15. MIDAZOLAM HCL [Concomitant]
     Route: 042
     Dates: start: 20060314, end: 20060315
  16. HEPARIN [Concomitant]
     Route: 042
     Dates: start: 20060314, end: 20060315
  17. LEVOPHED [Concomitant]
     Route: 042
     Dates: start: 20060314, end: 20060315
  18. ULTIVA [Concomitant]
     Route: 042
     Dates: start: 20060314, end: 20060315
  19. DOPAMINE HCL [Concomitant]
     Route: 042
     Dates: start: 20060314, end: 20060315
  20. AMUKIN [Concomitant]
     Route: 042
     Dates: start: 20060314, end: 20060314
  21. CAPOTEN [Concomitant]
     Route: 048
     Dates: start: 20060312, end: 20060314
  22. ALL OTHER THERAPEUTIC PRODUCTS [Concomitant]
     Route: 048
     Dates: start: 20060310, end: 20060314
  23. HYPNOMIDATE [Concomitant]
     Route: 042
     Dates: start: 20060314, end: 20060314
  24. LASIX [Concomitant]
     Route: 042
     Dates: start: 20060312, end: 20060314
  25. AUGMENTIN '125' [Concomitant]
     Route: 042
     Dates: start: 20060311, end: 20060312
  26. VALIUM [Concomitant]
     Route: 042
     Dates: start: 20060309, end: 20060309
  27. ANEXATE TAB [Concomitant]
     Route: 042
     Dates: start: 20060305, end: 20060305
  28. METRONIDAZOLE [Concomitant]
     Route: 042
     Dates: start: 20060305, end: 20060306
  29. MAXIPIME [Concomitant]
     Route: 042
     Dates: start: 20060305, end: 20060306
  30. MAXIPIME [Concomitant]
     Route: 042
     Dates: start: 20060312, end: 20060314
  31. NALOXONE [Concomitant]
     Route: 042
     Dates: start: 20060305, end: 20060305
  32. DOPAMINE HCL [Concomitant]
     Route: 042
     Dates: start: 20060303, end: 20060305
  33. CALCIUM [Concomitant]
     Route: 042
     Dates: start: 20060305, end: 20060305
  34. NIMBEX [Concomitant]
     Route: 042
     Dates: start: 20060303, end: 20060304
  35. OPIOIDS [Concomitant]
     Route: 042
     Dates: start: 20060303, end: 20060305
  36. HALDOL [Concomitant]
     Route: 042
     Dates: start: 20060305, end: 20060305
  37. POTASSIUM CHLORIDE [Concomitant]
     Route: 065
     Dates: start: 20060313, end: 20060313

REACTIONS (1)
  - SHOCK [None]
